FAERS Safety Report 16709868 (Version 4)
Quarter: 2022Q3

REPORT INFORMATION
  Report Type: Spontaneous
  Country: US (occurrence: US)
  Receive Date: 20190816
  Receipt Date: 20220818
  Transmission Date: 20221027
  Serious: No
  Sender: FDA-Public Use
  Company Number: US-PFIZER INC-2018188874

PATIENT
  Age: 56 Year
  Sex: Female

DRUGS (3)
  1. EUCRISA [Suspect]
     Active Substance: CRISABOROLE
     Indication: Rash
     Dosage: 2X/DAY (APPLY TO AFFECTED AREA(S) TWICE A DAY)
  2. EUCRISA [Suspect]
     Active Substance: CRISABOROLE
     Dosage: UNK, 1X/DAY (QD USE/ QD TO RASH)
  3. EUCRISA [Suspect]
     Active Substance: CRISABOROLE
     Dosage: DAILY (APPLY TO AFFECTED AREA EVERY DAY AS DIRECTED)

REACTIONS (2)
  - Off label use [Unknown]
  - Drug ineffective for unapproved indication [Unknown]
